FAERS Safety Report 21308429 (Version 1)
Quarter: 2022Q3

REPORT INFORMATION
  Report Type: Spontaneous
  Country: US (occurrence: None)
  Receive Date: 20220908
  Receipt Date: 20220908
  Transmission Date: 20221027
  Serious: Yes (Hospitalization)
  Sender: FDA-Public Use
  Company Number: None

PATIENT
  Age: 61 Year
  Sex: Female

DRUGS (1)
  1. LANTUS SOLOSTAR [Suspect]
     Active Substance: INSULIN GLARGINE
     Indication: Type 1 diabetes mellitus
     Dosage: FREQUENCY : DAILY;?
     Dates: start: 20220531, end: 20220810

REACTIONS (8)
  - Eructation [None]
  - Eating disorder [None]
  - Dyspnoea [None]
  - Vomiting [None]
  - Duodenogastric reflux [None]
  - Gastric disorder [None]
  - Illness [None]
  - Product complaint [None]

NARRATIVE: CASE EVENT DATE: 20220728
